FAERS Safety Report 4637103-2 (Version None)
Quarter: 2005Q2

REPORT INFORMATION
  Report Type: 
  Country: None (occurrence: None)
  Receive Date: 20050325
  Receipt Date: 20050125
  Transmission Date: 20051028
  Serious: No
  Sender: FDA-Public Use
  Company Number: USA041082372

PATIENT
  Age: 79 Year
  Sex: Female

DRUGS (5)
  1. FORTEO [Suspect]
     Indication: OSTEOPOROSIS
     Dates: start: 20040201, end: 20041101
  2. ASPIRIN [Concomitant]
  3. ZOCOR (SIMVASTATIN RATIOPHARM) [Concomitant]
  4. CRESTOR [Concomitant]
  5. BAYCOL [Concomitant]

REACTIONS (14)
  - ASTHENIA [None]
  - BALANCE DISORDER [None]
  - BLOOD ALKALINE PHOSPHATASE INCREASED [None]
  - BONE PAIN [None]
  - DISTURBANCE IN ATTENTION [None]
  - DIZZINESS [None]
  - EOSINOPHIL COUNT INCREASED [None]
  - GAIT DISTURBANCE [None]
  - HYPERCALCAEMIA [None]
  - MUSCLE SPASMS [None]
  - MYALGIA [None]
  - OSTEOARTHRITIS [None]
  - PAIN IN EXTREMITY [None]
  - SPINAL OSTEOARTHRITIS [None]
